FAERS Safety Report 5067093-2 (Version None)
Quarter: 2006Q3

REPORT INFORMATION
  Report Type: 
  Country: None (occurrence: None)
  Receive Date: 20060727
  Receipt Date: 20060717
  Transmission Date: 20061208
  Serious: Yes (Hospitalization)
  Sender: FDA-Public Use
  Company Number: 2006088280

PATIENT
  Age: 90 Year
  Sex: Female

DRUGS (9)
  1. SPIRONOLACTONE [Suspect]
     Indication: ESSENTIAL HYPERTENSION
     Dates: end: 20060404
  2. TRAMADOL HCL [Suspect]
     Indication: CONTUSION
     Dosage: 200 MG (200 MG, FREQUENCY: EVERY DAY), ORAL
     Route: 048
     Dates: start: 20060330, end: 20060404
  3. MIRTAZAPINE [Suspect]
     Indication: DEPRESSION
     Dosage: 1 DOSE (PER DAY), ORAL
     Route: 048
     Dates: end: 20060404
  4. TETRAZEPAM (TETRAZEPAM) [Suspect]
     Indication: CONTUSION
     Dosage: 50 MG (50 MG, INTERVAL: EVERY DAY), ORAL
     Route: 048
     Dates: start: 20060330, end: 20060404
  5. FOSAMAX [Concomitant]
  6. ACETAMINOPHEN [Concomitant]
  7. CACIT D3 (CALCIUM CARBONATE, COLECALCIFEROL) [Concomitant]
  8. LEVOTHYROXINE SODIUM [Concomitant]
  9. INIPOMP (PANTOPRAZOLE) [Concomitant]

REACTIONS (13)
  - ASTHENIA [None]
  - CONFUSIONAL STATE [None]
  - DIARRHOEA [None]
  - DISORIENTATION [None]
  - DRUG INTERACTION [None]
  - DRY MOUTH [None]
  - FALL [None]
  - HYPONATRAEMIA [None]
  - MUSCULOSKELETAL CHEST PAIN [None]
  - NAUSEA [None]
  - RIB FRACTURE [None]
  - SOMNOLENCE [None]
  - VOMITING [None]
